FAERS Safety Report 5486311-X (Version None)
Quarter: 2007Q3

REPORT INFORMATION
  Report Type: 
  Country: None (occurrence: None)
  Receive Date: 20070917
  Receipt Date: 20070524
  Transmission Date: 20080115
  Serious: Yes (Death)
  Sender: FDA-Public Use
  Company Number: S07-USA-02240-01

PATIENT
  Age: 60 Year

DRUGS (2)
  1. CELEXA [Suspect]
     Dates: start: 20070301, end: 20070301
  2. CELEXA [Suspect]
     Dates: end: 20070301

REACTIONS (1)
  - OVERDOSE [None]
